FAERS Safety Report 9720170 (Version 1)
Quarter: 2013Q4

REPORT INFORMATION
  Report Type: Spontaneous
  Country: US (occurrence: US)
  Receive Date: 20131129
  Receipt Date: 20131129
  Transmission Date: 20140711
  Serious: Yes (Hospitalization, Other)
  Sender: FDA-Public Use
  Company Number: US-PAR PHARMACEUTICAL, INC-2013SCPR007783

PATIENT
  Sex: 0

DRUGS (2)
  1. FENTANYL CITRATE [Suspect]
     Indication: PRODUCT USED FOR UNKNOWN INDICATION
     Dosage: 2 DF, UNKNOWN
     Route: 048
  2. GABAPENTIN [Suspect]
     Indication: PRODUCT USED FOR UNKNOWN INDICATION
     Dosage: 90 DF, UNKNOWN
     Route: 048

REACTIONS (9)
  - Toxicity to various agents [Unknown]
  - Mydriasis [Unknown]
  - X-ray abnormal [Unknown]
  - Irritability [Unknown]
  - Tachycardia [Unknown]
  - Tremor [Unknown]
  - Agitation [Unknown]
  - Diarrhoea [Unknown]
  - Vomiting [Unknown]
